FAERS Safety Report 4960095-3 (Version None)
Quarter: 2006Q1

REPORT INFORMATION
  Report Type: 
  Country: None (occurrence: None)
  Receive Date: 20060328
  Receipt Date: 20060314
  Transmission Date: 20060701
  Serious: Yes (Death, Hospitalization)
  Sender: FDA-Public Use
  Company Number: US-2006-006035

PATIENT
  Age: 42 Year
  Sex: Male

DRUGS (4)
  1. FLUDARA [Suspect]
     Indication: BONE MARROW CONDITIONING REGIMEN
     Dosage: 25 MG/M2 D-5 TO D, INTRAVENOUS
     Route: 042
     Dates: start: 20010101, end: 20010101
  2. CYCLOPHOSPHAMIDE [Suspect]
     Indication: BONE MARROW CONDITIONING REGIMEN
     Dosage: 60 MG/KG D-7, D-7, INTRAVENOUS
     Route: 042
     Dates: start: 20010101, end: 20010101
  3. CYCLOSPORINE [Concomitant]
  4. MYCOPHENOLATE MOFETIL [Concomitant]

REACTIONS (9)
  - ASPERGILLOSIS [None]
  - DISEASE PROGRESSION [None]
  - FLUSHING [None]
  - GRAFT VERSUS HOST DISEASE [None]
  - MALIGNANT NEOPLASM PROGRESSION [None]
  - MASTOCYTOSIS [None]
  - NAUSEA [None]
  - TYPE IV HYPERSENSITIVITY REACTION [None]
  - VOMITING [None]
